FAERS Safety Report 5900627-1 (Version None)
Quarter: 2008Q3

REPORT INFORMATION
  Report Type: 
  Country: None (occurrence: None)
  Receive Date: 20080926
  Receipt Date: 20080914
  Transmission Date: 20090109
  Serious: Yes (Other)
  Sender: FDA-Public Use
  Company Number: US-PFIZER INC-2008078262

PATIENT
  Age: 86 Year
  Sex: Female
  Weight: 61.363 kg

DRUGS (6)
  1. LYRICA [Suspect]
     Indication: SCIATICA
     Dates: start: 20080301
  2. BENADRYL [Suspect]
     Dates: start: 20080912
  3. LIPITOR [Concomitant]
  4. ALL OTHER THERAPEUTIC PRODUCTS [Concomitant]
  5. NEXIUM [Concomitant]
  6. DIURETICS [Concomitant]

REACTIONS (4)
  - EYE SWELLING [None]
  - OEDEMA PERIPHERAL [None]
  - RASH GENERALISED [None]
  - WEIGHT INCREASED [None]
